FAERS Safety Report 4530417-6 (Version None)
Quarter: 2004Q4

REPORT INFORMATION
  Report Type: 
  Country: None (occurrence: None)
  Receive Date: 20041217
  Receipt Date: 20040831
  Transmission Date: 20050328
  Serious: Yes (Death)
  Sender: FDA-Public Use
  Company Number: US-NOVOPROD-239037

PATIENT
  Age: 40 Year
  Sex: Male

DRUGS (3)
  1. NOVOSEVEN [Suspect]
     Indication: GASTROINTESTINAL HAEMORRHAGE
     Dosage: UNK, BID
     Route: 042
     Dates: start: 20040828, end: 20040828
  2. PROTONIX [Concomitant]
     Indication: OESOPHAGITIS
  3. OCTREOTIDE [Concomitant]
     Indication: VARICES OESOPHAGEAL

REACTIONS (2)
  - CARDIAC ARREST [None]
  - DISEASE PROGRESSION [None]
